FAERS Safety Report 6738105-2 (Version None)
Quarter: 2010Q2

REPORT INFORMATION
  Report Type: 
  Country: None (occurrence: None)
  Receive Date: 20100524
  Receipt Date: 20100519
  Transmission Date: 20101027
  Serious: Yes (Other)
  Sender: FDA-Public Use
  Company Number: US-GILEAD-2010-0029324

PATIENT
  Age: 70 Year
  Sex: Male

DRUGS (3)
  1. TRUVADA [Suspect]
     Indication: HIV INFECTION
  2. ATAZANAVIR [Concomitant]
     Indication: HIV INFECTION
  3. RITONAVIR [Concomitant]
     Indication: HIV INFECTION

REACTIONS (1)
  - RHABDOMYOLYSIS [None]
